FAERS Safety Report 4863028-3 (Version None)
Quarter: 2005Q4

REPORT INFORMATION
  Report Type: 
  Country: None (occurrence: None)
  Receive Date: 20051219
  Receipt Date: 20051206
  Transmission Date: 20060501
  Serious: Yes (Other)
  Sender: FDA-Public Use
  Company Number: MED000027

PATIENT
  Sex: 0

DRUGS (1)
  1. HEPARIN SODIUM [Suspect]
     Dosage: IV
     Route: 042

REACTIONS (4)
  - ACCIDENTAL OVERDOSE [None]
  - INCORRECT DRUG ADMINISTRATION RATE [None]
  - MEDICAL DEVICE COMPLICATION [None]
  - RETROPERITONEAL HAEMORRHAGE [None]
